FAERS Safety Report 6243610-1 (Version None)
Quarter: 2009Q2

REPORT INFORMATION
  Report Type: 
  Country: None (occurrence: None)
  Receive Date: 20090624
  Receipt Date: 20090508
  Transmission Date: 20091009
  Serious: Yes (Other)
  Sender: FDA-Public Use
  Company Number: BR-PFIZER INC-2009211089

PATIENT
  Age: 68 Year

DRUGS (2)
  1. VIAGRA [Suspect]
     Indication: ERECTILE DYSFUNCTION
  2. ATENOLOL [Concomitant]
     Dosage: UNK

REACTIONS (1)
  - HAEMATOCHEZIA [None]
